FAERS Safety Report 19107755 (Version 1)
Quarter: 2021Q2

REPORT INFORMATION
  Report Type: Spontaneous
  Country: US (occurrence: US)
  Receive Date: 20210408
  Receipt Date: 20210408
  Transmission Date: 20210717
  Serious: Yes (Other)
  Sender: FDA-Public Use
  Company Number: US-GLAXOSMITHKLINE-US2021GSK078080

PATIENT
  Sex: Female

DRUGS (4)
  1. ZANTAC [Suspect]
     Active Substance: RANITIDINE HYDROCHLORIDE
     Indication: VAGINAL CANCER
     Dosage: 300 MG, QD
     Route: 065
     Dates: start: 201508, end: 201709
  2. RANITIDINE HYDROCHLORIDE. [Suspect]
     Active Substance: RANITIDINE HYDROCHLORIDE
     Indication: VAGINAL CANCER
     Dosage: 300 MG, QD
     Route: 065
     Dates: start: 201508, end: 201709
  3. RANITIDINE HYDROCHLORIDE. [Suspect]
     Active Substance: RANITIDINE HYDROCHLORIDE
     Indication: VAGINAL CANCER
     Dosage: 300 MG, QD
     Route: 065
     Dates: start: 201508, end: 201709
  4. ZANTAC [Suspect]
     Active Substance: RANITIDINE HYDROCHLORIDE
     Indication: VAGINAL CANCER
     Dosage: 300 MG, QD
     Route: 065
     Dates: start: 201508, end: 201709

REACTIONS (1)
  - Vaginal cancer [Unknown]
